FAERS Safety Report 24782623 (Version 2)
Quarter: 2025Q1

REPORT INFORMATION
  Report Type: Spontaneous
  Country: CG (occurrence: CG)
  Receive Date: 20241227
  Receipt Date: 20250103
  Transmission Date: 20250409
  Serious: Yes (Hospitalization)
  Sender: BAYER HEALTHCARE PHARMACEUTICALS INC.
  Company Number: CG-BAYER-2024A182385

PATIENT
  Age: 5 Month
  Sex: Female
  Weight: 2.3 kg

DRUGS (3)
  1. CIPROFLOXACIN [Suspect]
     Active Substance: CIPROFLOXACIN
     Indication: Sepsis
     Route: 013
  2. QUININE [Concomitant]
     Active Substance: QUININE
  3. DEXTROSE [Concomitant]
     Active Substance: DEXTROSE MONOHYDRATE

REACTIONS (3)
  - Necrosis of artery [Recovering/Resolving]
  - Product use issue [None]
  - Incorrect route of product administration [None]
